FAERS Safety Report 24809346 (Version 2)
Quarter: 2025Q3

REPORT INFORMATION
  Report Type: Spontaneous
  Country: GB (occurrence: GB)
  Receive Date: 20250106
  Receipt Date: 20250803
  Transmission Date: 20251020
  Serious: Yes (Other)
  Sender: ALEXION PHARMACEUTICALS
  Company Number: GB-MHRA-EMIS-143020-4e7815ec-6326-42ac-8212-83fa2ea4430c

PATIENT
  Age: 67 Year
  Sex: Male
  Weight: 97 kg

DRUGS (2)
  1. CRESTOR [Suspect]
     Active Substance: ROSUVASTATIN CALCIUM
     Route: 065
  2. Comirnaty [Concomitant]
     Route: 065

REACTIONS (1)
  - Tachycardia [Not Recovered/Not Resolved]
